FAERS Safety Report 9263726 (Version 2)
Quarter: 2014Q1

REPORT INFORMATION
  Report Type: Report from Study
  Country: DE (occurrence: DE)
  Receive Date: 20130430
  Receipt Date: 20140210
  Transmission Date: 20141002
  Serious: Yes (Hospitalization)
  Sender: FDA-Public Use
  Company Number: PHHY2011DE38810

PATIENT
  Age: 53 Year
  Sex: Female
  Weight: 85 kg

DRUGS (8)
  1. AMN107 [Suspect]
     Indication: CHRONIC MYELOID LEUKAEMIA
     Dosage: 600 MG
     Route: 048
     Dates: start: 20100128, end: 20100301
  2. AMN107 [Suspect]
     Dosage: 400 MG
     Route: 048
     Dates: start: 20100302, end: 20100428
  3. AMN107 [Suspect]
     Dosage: 600 MG
     Route: 048
     Dates: start: 20100705, end: 20100928
  4. AMN107 [Suspect]
     Dosage: 800 MG
     Route: 048
     Dates: start: 20100929
  5. ACETYLSALICYLIC ACID [Concomitant]
     Dates: start: 20091217
  6. LYRICA [Concomitant]
     Dates: start: 20091217
  7. NORVASC [Concomitant]
     Dates: start: 20091217
  8. L-THYROXIN [Concomitant]
     Dates: start: 20050624

REACTIONS (2)
  - Intracranial aneurysm [Unknown]
  - Transaminases increased [Recovered/Resolved]
